FAERS Safety Report 24528450 (Version 9)
Quarter: 2025Q3

REPORT INFORMATION
  Report Type: Spontaneous
  Country: US (occurrence: US)
  Receive Date: 20241021
  Receipt Date: 20250829
  Transmission Date: 20251021
  Serious: Yes (Other)
  Sender: CSL BEHRING
  Company Number: US-BEH-2024182009

PATIENT
  Age: 42 Year
  Sex: Female

DRUGS (12)
  1. HAEGARDA [Suspect]
     Active Substance: HUMAN C1-ESTERASE INHIBITOR
     Indication: Hereditary angioedema
     Dosage: 5000 IU (10 ML), BIW
     Route: 058
     Dates: start: 202409
  2. HAEGARDA [Suspect]
     Active Substance: HUMAN C1-ESTERASE INHIBITOR
     Indication: Prophylaxis
     Dosage: 2000 IU, BIW
     Route: 058
     Dates: start: 202409
  3. HAEGARDA [Suspect]
     Active Substance: HUMAN C1-ESTERASE INHIBITOR
     Indication: Hereditary angioedema
     Dosage: 5000 IU (10 ML), BIW
     Route: 058
     Dates: start: 202409
  4. HAEGARDA [Suspect]
     Active Substance: HUMAN C1-ESTERASE INHIBITOR
     Indication: Prophylaxis
     Dosage: 3000 IU, BIW
     Route: 058
     Dates: start: 202409
  5. RUCONEST [Concomitant]
     Active Substance: CONESTAT ALFA
  6. STERILE WATER [Concomitant]
     Active Substance: WATER
  7. TAKHZYRO [Concomitant]
     Active Substance: LANADELUMAB-FLYO
  8. SODIUM CHLORIDE [Concomitant]
     Active Substance: SODIUM CHLORIDE
  9. ICATIBANT [Concomitant]
     Active Substance: ICATIBANT ACETATE
  10. ICATIBANT ACETATE [Concomitant]
     Active Substance: ICATIBANT ACETATE
  11. KYLEENA [Concomitant]
     Active Substance: LEVONORGESTREL
     Indication: Intrauterine contraception
  12. HAEGARDA [Concomitant]
     Active Substance: HUMAN C1-ESTERASE INHIBITOR
     Route: 065

REACTIONS (20)
  - Hereditary angioedema [Recovered/Resolved]
  - Hereditary angioedema [Recovered/Resolved]
  - Hereditary angioedema [Recovered/Resolved]
  - Hereditary angioedema [Recovered/Resolved]
  - Hereditary angioedema [Unknown]
  - Hereditary angioedema [Unknown]
  - Hereditary angioedema [Unknown]
  - Hereditary angioedema [Unknown]
  - Hereditary angioedema [Unknown]
  - Hereditary angioedema [Unknown]
  - Hereditary angioedema [Unknown]
  - Hereditary angioedema [Unknown]
  - Hereditary angioedema [Unknown]
  - Hereditary angioedema [Unknown]
  - Hereditary angioedema [Unknown]
  - Hereditary angioedema [Unknown]
  - Hereditary angioedema [Recovered/Resolved]
  - Hereditary angioedema [Recovered/Resolved]
  - Injection site bruising [Unknown]
  - Weight increased [Unknown]

NARRATIVE: CASE EVENT DATE: 20240927
